FAERS Safety Report 13338058 (Version 1)
Quarter: 2017Q1

REPORT INFORMATION
  Report Type: Spontaneous
  Country: US (occurrence: US)
  Receive Date: 20170315
  Receipt Date: 20170315
  Transmission Date: 20170428
  Serious: Yes (Other)
  Sender: FDA-Public Use
  Company Number: US-TEVA-750078USA

PATIENT
  Sex: Female

DRUGS (1)
  1. COPAXONE [Suspect]
     Active Substance: GLATIRAMER ACETATE
     Dosage: UNKNOWN FORM STRENGTH

REACTIONS (6)
  - Adverse event [Unknown]
  - Feeling abnormal [Unknown]
  - Fatigue [Unknown]
  - Body temperature fluctuation [Unknown]
  - Multiple sclerosis [Unknown]
  - Paraesthesia [Unknown]
